FAERS Safety Report 20660220 (Version 1)
Quarter: 2022Q1

REPORT INFORMATION
  Report Type: Report from Study
  Country: DE (occurrence: DE)
  Receive Date: 20220331
  Receipt Date: 20220331
  Transmission Date: 20220423
  Serious: Yes (Hospitalization, Other)
  Sender: FDA-Public Use
  Company Number: DE-SHIRE-DE201816687

PATIENT
  Age: 46 Year
  Weight: 104 kg

DRUGS (27)
  1. ADVATE [Suspect]
     Active Substance: ANTIHEMOPHILIC FACTOR, HUMAN RECOMBINANT
     Indication: Prophylaxis
     Dosage: UNK
     Route: 042
     Dates: start: 20090901
  2. ADVATE [Suspect]
     Active Substance: ANTIHEMOPHILIC FACTOR, HUMAN RECOMBINANT
     Indication: Prophylaxis
     Dosage: UNK
     Route: 042
     Dates: start: 20090901
  3. ADVATE [Suspect]
     Active Substance: ANTIHEMOPHILIC FACTOR, HUMAN RECOMBINANT
     Indication: Prophylaxis
     Dosage: UNK
     Route: 042
     Dates: start: 20090901
  4. KALETRA [Concomitant]
     Active Substance: LOPINAVIR\RITONAVIR
     Indication: Antiretroviral therapy
     Dosage: UNK UNK, BID
     Route: 048
     Dates: start: 20051001, end: 20120215
  5. EFAVIRENZ [Concomitant]
     Active Substance: EFAVIRENZ
     Indication: Antiretroviral therapy
     Dosage: 600 MILLIGRAM, QD
     Route: 048
     Dates: start: 20041001, end: 20120215
  6. ETORICOXIB [Concomitant]
     Active Substance: ETORICOXIB
     Indication: Analgesic therapy
     Dosage: 60 MILLIGRAM
     Route: 048
  7. RALTEGRAVIR [Concomitant]
     Active Substance: RALTEGRAVIR
     Indication: Antiretroviral therapy
     Dosage: 400 MILLIGRAM, BID
     Route: 048
     Dates: start: 20120216
  8. TRUVADA [Concomitant]
     Active Substance: EMTRICITABINE\TENOFOVIR DISOPROXIL FUMARATE
     Indication: Antiretroviral therapy
     Dosage: 200 MILLIGRAM, QD
     Route: 048
     Dates: start: 20120216
  9. PROPRANOLOL [Concomitant]
     Active Substance: PROPRANOLOL HYDROCHLORIDE
     Indication: Varices oesophageal
     Dosage: 80 MILLIGRAM, QD
     Route: 048
     Dates: start: 20151022, end: 201611
  10. PROPRANOLOL [Concomitant]
     Active Substance: PROPRANOLOL HYDROCHLORIDE
     Indication: Portal hypertension
     Dosage: 5 MILLIGRAM, BID
     Route: 048
     Dates: start: 20180403
  11. PANTOPRAZOLE SODIUM [Concomitant]
     Active Substance: PANTOPRAZOLE SODIUM
     Indication: Varices oesophageal
     Dosage: 40 MILLIGRAM, BID
     Route: 048
     Dates: start: 20151007
  12. PANTOPRAZOLE SODIUM [Concomitant]
     Active Substance: PANTOPRAZOLE SODIUM
     Indication: Gastric ulcer
  13. ARCOXIA [Concomitant]
     Active Substance: ETORICOXIB
     Indication: Analgesic therapy
     Dosage: 60 MILLIGRAM
     Route: 048
     Dates: start: 20121107
  14. PROPRANOLOL HYDROCHLORIDE [Concomitant]
     Active Substance: PROPRANOLOL HYDROCHLORIDE
     Indication: Varices oesophageal
     Dosage: 10 MILLIGRAM, TID
     Route: 048
     Dates: start: 20111024, end: 20111220
  15. ALBUMIN HUMAN [Concomitant]
     Active Substance: ALBUMIN HUMAN
     Indication: Hepatic cirrhosis
     Dosage: 20 MILLIGRAM, BID
     Route: 042
     Dates: start: 20180412
  16. CEFOTAXIME [Concomitant]
     Active Substance: CEFOTAXIME SODIUM
     Indication: Hepatic cirrhosis
     Dosage: 2 GRAM, QD
     Route: 042
     Dates: start: 20180412
  17. TERLIPRESSIN [Concomitant]
     Active Substance: TERLIPRESSIN
     Indication: Hepatic cirrhosis
     Dosage: UNK
     Route: 042
     Dates: start: 20180416
  18. SPIRONOLACTONE [Concomitant]
     Active Substance: SPIRONOLACTONE
     Indication: Hepatic cirrhosis
     Dosage: 100 MILLIGRAM, QD
     Route: 048
     Dates: start: 20180411, end: 20180415
  19. TORSEMIDE [Concomitant]
     Active Substance: TORSEMIDE
     Indication: Hepatic cirrhosis
     Dosage: 10 MILLIGRAM, QD
     Route: 048
     Dates: start: 20180411, end: 20180415
  20. CYKLOKAPRON [Concomitant]
     Active Substance: TRANEXAMIC ACID
     Indication: Haemorrhage prophylaxis
     Dosage: 500 MILLIGRAM, TID
     Route: 048
  21. ATENOLOL [Concomitant]
     Active Substance: ATENOLOL
     Indication: Portal hypertension
     Dosage: UNK
     Route: 048
     Dates: start: 20151021
  22. METRONIDAZOLE [Concomitant]
     Active Substance: METRONIDAZOLE
     Indication: Abdominal infection
     Dosage: 400 MILLIGRAM, BID
     Route: 048
     Dates: start: 20180418, end: 20180419
  23. IONOSTERIL [Concomitant]
     Dosage: 500 MILLILITER, BID
     Route: 042
     Dates: start: 201804, end: 201804
  24. MEROPENEM [Concomitant]
     Active Substance: MEROPENEM
     Indication: Abdominal infection
     Dosage: UNK
     Route: 042
     Dates: start: 20180419, end: 20180423
  25. VANCOMYCIN [Concomitant]
     Active Substance: VANCOMYCIN
     Indication: Abdominal infection
     Dosage: UNK
     Route: 042
     Dates: start: 20180421, end: 20180423
  26. CASPOFUNGIN [Concomitant]
     Active Substance: CASPOFUNGIN
     Indication: Abdominal infection
     Dosage: UNK
     Route: 042
     Dates: start: 20180421, end: 20180423
  27. AMOXICILLIN\CLAVULANATE POTASSIUM [Concomitant]
     Active Substance: AMOXICILLIN\CLAVULANATE POTASSIUM
     Indication: Abdominal infection
     Dosage: UNK
     Dates: start: 20180423, end: 20180424

REACTIONS (1)
  - Gastric ulcer [Not Recovered/Not Resolved]

NARRATIVE: CASE EVENT DATE: 20180403
